FAERS Safety Report 23978939 (Version 2)
Quarter: 2024Q2

REPORT INFORMATION
  Report Type: Report from Study
  Country: US (occurrence: US)
  Receive Date: 20240615
  Receipt Date: 20240628
  Transmission Date: 20240716
  Serious: Yes (Hospitalization)
  Sender: FDA-Public Use
  Company Number: US-ABBVIE-5800655

PATIENT
  Age: 91 Year
  Sex: Female

DRUGS (12)
  1. BOTOX [Suspect]
     Active Substance: BOTULINUM TOXIN TYPE A\ONABOTULINUMTOXINA
     Indication: Myalgia
     Dosage: TIME INTERVAL: AS NECESSARY
     Route: 030
     Dates: start: 20201019, end: 20201019
  2. LEVSIN [Concomitant]
     Active Substance: HYOSCYAMINE SULFATE
     Indication: Product used for unknown indication
     Dosage: FORM STRENGTH: 0.125 MG?TAKE 1 TABLET BY MOUTH DAILY
     Route: 048
  3. ANASPAZ [Concomitant]
     Active Substance: HYOSCYAMINE SULFATE
     Indication: Product used for unknown indication
     Dosage: FORM STRENGTH: 0.125 MG?TAKE 1 TABLET BY MOUTH DAILY
     Route: 048
  4. PLAQUENIL [Concomitant]
     Active Substance: HYDROXYCHLOROQUINE SULFATE
     Indication: Product used for unknown indication
     Dosage: 200 MG TABLET, TAKE 200 MG BY MOUTH TWICE DAILY
     Route: 048
  5. SKELAXIN [Concomitant]
     Active Substance: METAXALONE
     Indication: Product used for unknown indication
     Dosage: TIME INTERVAL: AS NECESSARY: 400 MG TABLET, TAKE 1 TABLET BY MOUTH AS NEEDED.
     Route: 048
  6. CALTRATE 600+D [Concomitant]
     Indication: Product used for unknown indication
     Dosage: 1,500 MG - 400 UNITS (600 MG ELEMENTAL CALCIUM PER TABLET) PER TABLET
     Route: 048
  7. FISH OIL\OMEGA-3 FATTY ACIDS [Concomitant]
     Active Substance: FISH OIL\OMEGA-3 FATTY ACIDS
     Indication: Product used for unknown indication
     Dosage: 300-1,000 MG CAPSULE, TAKE 2 G BY MOUTH DAILY.
     Route: 048
  8. VITAMIN D3 [Concomitant]
     Active Substance: CHOLECALCIFEROL
     Indication: Product used for unknown indication
     Dosage: 5,000 UNITS TABLET, TAKE 1 TABLET BY MOUTH DAILY.
     Route: 048
  9. MELATONIN [Concomitant]
     Active Substance: MELATONIN
     Indication: Product used for unknown indication
     Dosage: TAKE 10 MG BY MOUTH AT BEDTIME.
     Route: 048
  10. MAGNESIUM [Concomitant]
     Active Substance: MAGNESIUM
     Indication: Product used for unknown indication
     Route: 048
  11. PROBIOTICS NOS [Concomitant]
     Active Substance: PROBIOTICS NOS
     Indication: Product used for unknown indication
     Dosage: TAKE 1 TABLET BY MOUTH DAILY
     Route: 048
  12. VITAMIN C [Concomitant]
     Active Substance: ASCORBIC ACID
     Indication: Product used for unknown indication
     Dosage: TAKE 2 TABLETS BY MOUTH DAILY
     Route: 048

REACTIONS (5)
  - Palpitations [Recovering/Resolving]
  - Flushing [Recovering/Resolving]
  - Tremor [Recovering/Resolving]
  - Off label use [Unknown]
  - Presyncope [Recovering/Resolving]

NARRATIVE: CASE EVENT DATE: 20201019
